FAERS Safety Report 8840915 (Version 1)
Quarter: 2012Q4

REPORT INFORMATION
  Report Type: 
  Country: US (occurrence: US)
  Receive Date: 20121015
  Receipt Date: 20121015
  Transmission Date: 20130627
  Serious: Yes (Other)
  Sender: FDA-Public Use
  Company Number: US-ROCHE-1137283

PATIENT
  Sex: Male

DRUGS (2)
  1. NUTROPIN [Suspect]
     Indication: HYPOTHALAMO-PITUITARY DISORDER
     Route: 065
  2. NUTROPIN [Suspect]
     Indication: HYPOTHALAMO-PITUITARY DISORDER

REACTIONS (6)
  - Depression [Unknown]
  - Malaise [Unknown]
  - Fatigue [Unknown]
  - Libido decreased [Unknown]
  - Dizziness [Unknown]
  - Blood testosterone decreased [Unknown]
